FAERS Safety Report 7313744 (Version 9)
Quarter: 2013Q1

REPORT INFORMATION
  Report Type: Spontaneous
  Country: US (occurrence: US)
  Receive Date: 20100310
  Receipt Date: 20130325
  Transmission Date: 20140127
  Serious: Yes (Other)
  Sender: FDA-Public Use
  Company Number: US-BAYER-201015291NA

PATIENT
  Age: 31 Year
  Sex: Female
  Weight: 59.8 kg

DRUGS (47)
  1. MAGNEVIST [Suspect]
     Indication: ANGIOGRAM
     Dosage: UNK
     Dates: start: 20070118, end: 20070118
  2. MAGNEVIST [Suspect]
     Indication: NUCLEAR MAGNETIC RESONANCE IMAGING
  3. OMNISCAN [Suspect]
     Indication: ANGIOGRAM
     Dosage: UNK
     Dates: start: 20030110, end: 20030110
  4. OMNISCAN [Suspect]
     Indication: NUCLEAR MAGNETIC RESONANCE IMAGING
     Dosage: 287MG
     Dates: start: 20030922, end: 20030922
  5. OMNISCAN [Suspect]
     Indication: NUCLEAR MAGNETIC RESONANCE IMAGING
     Dosage: 287MG
     Dates: start: 20030420, end: 20030420
  6. OMNISCAN [Suspect]
     Indication: NUCLEAR MAGNETIC RESONANCE IMAGING BRAIN
  7. OPTIMARK [Suspect]
     Indication: ANGIOGRAM
  8. OPTIMARK [Suspect]
     Indication: NUCLEAR MAGNETIC RESONANCE IMAGING
  9. OPTIMARK [Suspect]
     Indication: NUCLEAR MAGNETIC RESONANCE IMAGING BRAIN
  10. MULTIHANCE [GADOBENIC ACID MEGLUMINE] [Suspect]
     Indication: ANGIOGRAM
  11. MULTIHANCE [GADOBENIC ACID MEGLUMINE] [Suspect]
     Indication: NUCLEAR MAGNETIC RESONANCE IMAGING
  12. PROHANCE [GADOTERIDOL] [Suspect]
     Indication: ANGIOGRAM
  13. PROHANCE [GADOTERIDOL] [Suspect]
     Indication: NUCLEAR MAGNETIC RESONANCE IMAGING
  14. PRAVASTATIN [Concomitant]
     Indication: BLOOD PRESSURE INCREASED
  15. DILANTIN [Concomitant]
     Indication: EPILEPSY
  16. METHADONE [Concomitant]
     Indication: PAIN
  17. ENOXAPARIN [Concomitant]
  18. CLONIDINE [Concomitant]
  19. PROMETHAZINE [Concomitant]
  20. METOPROLOL [Concomitant]
  21. AMLODIPINE [Concomitant]
  22. NORVASC [Concomitant]
     Dosage: 10 MG BID
     Dates: start: 20031209
  23. ACCUPRIL [Concomitant]
     Dosage: 40 MG BID
     Dates: start: 20031209
  24. LABETALOL [Concomitant]
     Dosage: 400 MG TID
  25. PREDNISONE [Concomitant]
  26. VICODIN [Concomitant]
  27. DIAZEPAM [Concomitant]
  28. PHENYTOIN [Concomitant]
  29. MORPHINE [Concomitant]
  30. LIDOCAINE [Concomitant]
  31. ASPIRIN [Concomitant]
  32. IBUPROFEN [Concomitant]
  33. RENAGEL [SEVELAMER] [Concomitant]
  34. CARDURA [Concomitant]
  35. PLENDIL [Concomitant]
  36. CARDIZEM [Concomitant]
  37. HEPARIN [Concomitant]
  38. COUMADIN [Concomitant]
  39. LOVENOX [Concomitant]
  40. DEPAKOTE [Concomitant]
  41. LAMICTAL [Concomitant]
  42. AMIODARONE [Concomitant]
  43. VITAMIN K [Concomitant]
  44. ELAVIL [Concomitant]
     Indication: NEURALGIA
  45. FOLIC ACID [Concomitant]
     Indication: ANAEMIA
     Dosage: 800 ?G, UNK
  46. XANAX [Concomitant]
     Indication: ANXIETY
     Dosage: 0.25 MG, PRN
  47. RAMIPRIL [Concomitant]
     Dosage: 5 MG, UNK

REACTIONS (35)
  - Nephrogenic systemic fibrosis [Not Recovered/Not Resolved]
  - Pain [Not Recovered/Not Resolved]
  - Joint range of motion decreased [Not Recovered/Not Resolved]
  - Gait disturbance [Not Recovered/Not Resolved]
  - Musculoskeletal stiffness [Not Recovered/Not Resolved]
  - Arthralgia [Not Recovered/Not Resolved]
  - Pain in extremity [Not Recovered/Not Resolved]
  - Myalgia [Not Recovered/Not Resolved]
  - Finger deformity [Not Recovered/Not Resolved]
  - Atrophy [Not Recovered/Not Resolved]
  - Local swelling [Not Recovered/Not Resolved]
  - Joint contracture [Not Recovered/Not Resolved]
  - Skin hypertrophy [Not Recovered/Not Resolved]
  - Skin discolouration [Not Recovered/Not Resolved]
  - Skin tightness [Not Recovered/Not Resolved]
  - Skin swelling [Not Recovered/Not Resolved]
  - Skin burning sensation [Not Recovered/Not Resolved]
  - Pruritus [Not Recovered/Not Resolved]
  - Joint stiffness [Not Recovered/Not Resolved]
  - Arthralgia [Not Recovered/Not Resolved]
  - Skin hypertrophy [Not Recovered/Not Resolved]
  - Exfoliative rash [Not Recovered/Not Resolved]
  - Dry skin [Not Recovered/Not Resolved]
  - Muscular weakness [Not Recovered/Not Resolved]
  - Skin induration [Not Recovered/Not Resolved]
  - Stress [None]
  - Anxiety [None]
  - Anxiety [None]
  - Muscle contracture [Not Recovered/Not Resolved]
  - Muscle spasticity [Not Recovered/Not Resolved]
  - Rash [Not Recovered/Not Resolved]
  - Skin hyperpigmentation [Not Recovered/Not Resolved]
  - Dry skin [Not Recovered/Not Resolved]
  - Tendinous contracture [Not Recovered/Not Resolved]
  - Skin disorder [Not Recovered/Not Resolved]
